FAERS Safety Report 5007268-1 (Version None)
Quarter: 2006Q2

REPORT INFORMATION
  Report Type: 
  Country: None (occurrence: None)
  Receive Date: 20060518
  Receipt Date: 20060518
  Transmission Date: 20061013
  Serious: Yes (Other)
  Sender: FDA-Public Use
  Company Number: None

PATIENT
  Sex: Female
  Weight: 54.4316 kg

DRUGS (1)
  1. BISACODYL DELAYED RELEASE TABLES  5MG  BRAINTREE [Suspect]
     Indication: COLONOSCOPY
     Dosage: 4 TABLETS  ONCE PO
     Route: 048
     Dates: start: 20060514, end: 20060514

REACTIONS (6)
  - ABDOMINAL PAIN UPPER [None]
  - FALL [None]
  - LOSS OF CONSCIOUSNESS [None]
  - PAIN [None]
  - PERIORBITAL HAEMATOMA [None]
  - SYNCOPE [None]
